FAERS Safety Report 5777472-3 (Version None)
Quarter: 2008Q2

REPORT INFORMATION
  Report Type: 
  Country: None (occurrence: None)
  Receive Date: 20080618
  Receipt Date: 20080606
  Transmission Date: 20081010
  Serious: Yes (Hospitalization)
  Sender: FDA-Public Use
  Company Number: US-ROCHE-566405

PATIENT
  Age: 73 Year
  Sex: Female

DRUGS (1)
  1. CEFTRIAXONE [Suspect]
     Indication: PHLEBITIS
     Route: 042

REACTIONS (2)
  - BILE DUCT OBSTRUCTION [None]
  - PANCREATITIS [None]
